FAERS Safety Report 12317580 (Version 1)
Quarter: 2016Q2

REPORT INFORMATION
  Report Type: Spontaneous
  Country: US (occurrence: None)
  Receive Date: 20160428
  Receipt Date: 20160428
  Transmission Date: 20160815
  Serious: No
  Sender: FDA-Public Use
  Company Number: None

PATIENT
  Age: 54 Year
  Sex: Female
  Weight: 76 kg

DRUGS (1)
  1. HARVONI [Suspect]
     Active Substance: LEDIPASVIR\SOFOSBUVIR
     Indication: HEPATITIS C
     Dosage: 1 TAB QD ORAL???
     Route: 048
     Dates: start: 20160413

REACTIONS (2)
  - Decreased appetite [None]
  - Weight decreased [None]

NARRATIVE: CASE EVENT DATE: 20160427
